FAERS Safety Report 6286455-9 (Version None)
Quarter: 2009Q3

REPORT INFORMATION
  Report Type: 
  Country: None (occurrence: None)
  Receive Date: 20090728
  Receipt Date: 20090720
  Transmission Date: 20100115
  Serious: Yes (Death)
  Sender: FDA-Public Use
  Company Number: A0798905A

PATIENT
  Sex: Male
  Weight: 70 kg

DRUGS (3)
  1. SERETIDE [Suspect]
     Indication: CHRONIC OBSTRUCTIVE PULMONARY DISEASE
     Route: 055
     Dates: start: 20060101, end: 20090718
  2. SPIRIVA [Concomitant]
     Dates: start: 20060101, end: 20090718
  3. CARDIZEM [Concomitant]
     Dates: start: 20040101, end: 20090718

REACTIONS (1)
  - CEREBROVASCULAR ACCIDENT [None]
